FAERS Safety Report 5448290-0 (Version None)
Quarter: 2007Q3

REPORT INFORMATION
  Report Type: 
  Country: None (occurrence: None)
  Receive Date: 20070911
  Receipt Date: 20070904
  Transmission Date: 20080115
  Serious: Yes (Hospitalization)
  Sender: FDA-Public Use
  Company Number: PHBS2007IT14679

PATIENT
  Age: 73 Year
  Sex: Male

DRUGS (1)
  1. VOLTAREN [Suspect]
     Indication: RHEUMATOID ARTHRITIS
     Dosage: 75 MG, ONCE/SINGLE
     Route: 048
     Dates: start: 20070824, end: 20070824

REACTIONS (2)
  - ERYTHEMA [None]
  - LOSS OF CONSCIOUSNESS [None]
